FAERS Safety Report 7002504-4 (Version None)
Quarter: 2010Q3

REPORT INFORMATION
  Report Type: 
  Country: None (occurrence: None)
  Receive Date: 20100920
  Receipt Date: 20091105
  Transmission Date: 20110219
  Serious: Yes (Other)
  Sender: FDA-Public Use
  Company Number: US-ASTRAZENECA-2008UW27483

PATIENT
  Age: 10881 Day
  Sex: Male
  Weight: 81.6 kg

DRUGS (1)
  1. SEROQUEL [Suspect]
     Indication: SLEEP DISORDER
     Route: 048
     Dates: start: 20000501, end: 20070916

REACTIONS (2)
  - DIABETES MELLITUS [None]
  - PANCREATITIS [None]
